FAERS Safety Report 17654125 (Version 4)
Quarter: 2020Q4

REPORT INFORMATION
  Report Type: Spontaneous
  Country: IT (occurrence: IT)
  Receive Date: 20200410
  Receipt Date: 20201109
  Transmission Date: 20210113
  Serious: Yes (Death, Life-Threatening, Hospitalization, Other)
  Sender: FDA-Public Use
  Company Number: IT-ACCORD-178402

PATIENT
  Sex: Male

DRUGS (5)
  1. TACROLIMUS. [Suspect]
     Active Substance: TACROLIMUS
     Indication: IMMUNOSUPPRESSION
     Dosage: 0.075 MG/KG/DAY FROM POD3,LOWER DOSE OF TACROLIMUS (0.04 MG/KG/DAY)
     Dates: start: 2016
  2. ETANERCEPT [Suspect]
     Active Substance: ETANERCEPT
     Indication: IMMUNOSUPPRESSION
     Dosage: SUBCUTANEOUSLY ONCE PER WEEK
     Route: 058
     Dates: start: 2016
  3. METHYLPREDNISOLONE. [Suspect]
     Active Substance: METHYLPREDNISOLONE
     Indication: IMMUNOSUPPRESSION
     Dosage: FROM POSTOPERATIVE DAY (POD) 1, HIGHER DOSE (40 MG/DAY)
     Dates: start: 201611, end: 2016
  4. EVEROLIMUS. [Suspect]
     Active Substance: EVEROLIMUS
     Indication: IMMUNOSUPPRESSION
     Dosage: 3 MG/DAY FROM POD7
     Dates: start: 201611, end: 2016
  5. ANTITHYMOCYTE IMMUNOGLOBULIN [Suspect]
     Active Substance: THYMOCYTE IMMUNE GLOBULIN NOS
     Indication: IMMUNOSUPPRESSION
     Dosage: 1.5 MG/KG/DAY FOR 3 DAYS
     Dates: start: 2016, end: 2016

REACTIONS (11)
  - Intestinal haemorrhage [Unknown]
  - Septic shock [Fatal]
  - Graft versus host disease [Unknown]
  - Cytomegalovirus infection [Fatal]
  - Systemic inflammatory response syndrome [Unknown]
  - Enteritis [Unknown]
  - Malnutrition [Unknown]
  - Enterococcal infection [Fatal]
  - Bone marrow disorder [Unknown]
  - Multiple organ dysfunction syndrome [Fatal]
  - Aspergillus infection [Fatal]

NARRATIVE: CASE EVENT DATE: 2016
